FAERS Safety Report 5051294-3 (Version None)
Quarter: 2006Q3

REPORT INFORMATION
  Report Type: 
  Country: None (occurrence: None)
  Receive Date: 20060714
  Receipt Date: 20060711
  Transmission Date: 20061208
  Serious: Yes (Death)
  Sender: FDA-Public Use
  Company Number: 2006UW14263

PATIENT
  Age: 50 Year
  Sex: Female
  Weight: 142 kg

DRUGS (4)
  1. SEROQUEL [Suspect]
     Indication: HALLUCINATION, AUDITORY
  2. SEROQUEL [Suspect]
     Indication: MAJOR DEPRESSION
  3. SEROQUEL [Suspect]
     Indication: PSYCHOTIC DISORDER
  4. KLONOPIN [Suspect]

REACTIONS (2)
  - COMPLETED SUICIDE [None]
  - OVERDOSE [None]
